FAERS Safety Report 13144734 (Version 1)
Quarter: 2017Q1

REPORT INFORMATION
  Report Type: Report from Study
  Country: US (occurrence: US)
  Receive Date: 20170124
  Receipt Date: 20170124
  Transmission Date: 20170428
  Serious: Yes (Other)
  Sender: FDA-Public Use
  Company Number: US-JNJFOC-20160827149

PATIENT
  Age: 51 Year
  Sex: Male
  Weight: 95.71 kg

DRUGS (4)
  1. REMICADE [Suspect]
     Active Substance: INFLIXIMAB
     Indication: COLITIS ULCERATIVE
     Route: 042
  2. BENADRYL [Concomitant]
     Active Substance: DIPHENHYDRAMINE HYDROCHLORIDE
     Indication: PREMEDICATION
     Route: 065
  3. REMICADE [Suspect]
     Active Substance: INFLIXIMAB
     Indication: COLITIS ULCERATIVE
     Route: 042
     Dates: start: 201606, end: 20160602
  4. REMICADE [Suspect]
     Active Substance: INFLIXIMAB
     Indication: COLITIS ULCERATIVE
     Route: 042
     Dates: start: 201411

REACTIONS (21)
  - Choking [Recovered/Resolved]
  - Joint swelling [Unknown]
  - Hypersensitivity [Unknown]
  - Vomiting [Not Recovered/Not Resolved]
  - Arthralgia [Not Recovered/Not Resolved]
  - Pruritus [Unknown]
  - Inflammation [Unknown]
  - Product use issue [Unknown]
  - Infusion related reaction [Unknown]
  - Off label use [Unknown]
  - Lip swelling [Recovered/Resolved]
  - Swelling face [Unknown]
  - Pain [Unknown]
  - Dyspepsia [Unknown]
  - Pharyngeal oedema [Recovered/Resolved]
  - Drug effect decreased [Unknown]
  - Abdominal pain upper [Unknown]
  - Oropharyngeal pain [Unknown]
  - Local swelling [Unknown]
  - Dyspnoea [Unknown]
  - Swelling [Unknown]

NARRATIVE: CASE EVENT DATE: 201411
